FAERS Safety Report 4524714-8 (Version None)
Quarter: 2004Q4

REPORT INFORMATION
  Report Type: 
  Country: None (occurrence: None)
  Receive Date: 20041211
  Receipt Date: 20041202
  Transmission Date: 20050328
  Serious: Yes (Death, Other)
  Sender: FDA-Public Use
  Company Number: US-MERCK-0412USA00650

PATIENT

DRUGS (1)
  1. VIOXX [Suspect]
     Route: 048
     Dates: start: 20010101, end: 20040101

REACTIONS (5)
  - ADVERSE EVENT [None]
  - DEATH [None]
  - EJECTION FRACTION DECREASED [None]
  - INJURY [None]
  - MYOCARDIAL INFARCTION [None]
